FAERS Safety Report 5844641-3 (Version None)
Quarter: 2008Q3

REPORT INFORMATION
  Report Type: 
  Country: None (occurrence: None)
  Receive Date: 20080814
  Receipt Date: 20080805
  Transmission Date: 20090109
  Serious: Yes (Hospitalization)
  Sender: FDA-Public Use
  Company Number: DE-JNJFOC-20080801344

PATIENT
  Age: 71 Year
  Sex: Female
  Weight: 66.8 kg

DRUGS (4)
  1. REMICADE [Suspect]
     Indication: RHEUMATOID ARTHRITIS
     Route: 042
  2. METEX [Concomitant]
     Indication: RHEUMATOID ARTHRITIS
  3. INEGY [Concomitant]
     Indication: HYPERCHOLESTEROLAEMIA
     Dosage: 10/20
  4. RUBIFOL [Concomitant]
     Indication: RHEUMATOID ARTHRITIS

REACTIONS (1)
  - BASAL CELL CARCINOMA [None]
